FAERS Safety Report 5941400-8 (Version None)
Quarter: 2008Q4

REPORT INFORMATION
  Report Type: 
  Country: None (occurrence: None)
  Receive Date: 20081031
  Receipt Date: 20081027
  Transmission Date: 20090506
  Serious: Yes (Other)
  Sender: FDA-Public Use
  Company Number: 2008JP003895

PATIENT
  Age: 33 Year
  Sex: Female
  Weight: 54 kg

DRUGS (5)
  1. TACROLIMUS [Suspect]
     Indication: LUPUS NEPHRITIS
     Dosage: 2MG/D', ORAL
     Route: 048
     Dates: start: 20070418, end: 20070807
  2. PREDNISOLONE [Concomitant]
  3. RENIVACE (ENALAPRIL MALEATE) PER ORAL NOS [Concomitant]
  4. BAYASPIRIN PER ORAL NOS [Concomitant]
  5. ONEALFA (ALFACALCIDOL) PER ORAL NOS [Concomitant]

REACTIONS (1)
  - BILIARY CIRRHOSIS PRIMARY [None]
